FAERS Safety Report 4620368-0 (Version None)
Quarter: 2005Q1

REPORT INFORMATION
  Report Type: 
  Country: None (occurrence: None)
  Receive Date: 20050324
  Receipt Date: 20050312
  Transmission Date: 20050727
  Serious: Yes (Other)
  Sender: FDA-Public Use
  Company Number: 2005044794

PATIENT
  Age: 85 Year
  Sex: Male
  Weight: 63.5036 kg

DRUGS (19)
  1. NEURONTIN [Suspect]
     Indication: BURNING SENSATION
     Dosage: 300 MG (100 MG, 3 IN 1 D), ORAL
     Route: 048
     Dates: end: 20040101
  2. NEURONTIN [Suspect]
     Indication: HYPOAESTHESIA
     Dosage: 300 MG (100 MG, 3 IN 1 D), ORAL
     Route: 048
     Dates: end: 20040101
  3. NEURONTIN [Suspect]
     Indication: PRURITUS
     Dosage: 300 MG (100 MG, 3 IN 1 D), ORAL
     Route: 048
     Dates: end: 20040101
  4. GABAPENTIN [Suspect]
     Indication: BURNING SENSATION
     Dosage: ORAL
     Route: 048
     Dates: start: 20040101
  5. GABAPENTIN [Suspect]
     Indication: HYPOAESTHESIA
     Dosage: ORAL
     Route: 048
     Dates: start: 20040101
  6. GABAPENTIN [Suspect]
     Indication: PRURITUS
     Dosage: ORAL
     Route: 048
     Dates: start: 20040101
  7. ALL OTHER THERAPEUTIC PRODUCTS (ALL OTHER THERAPEUTIC PRODUCTS) [Concomitant]
  8. LEVOTHYROXINE SODIUM [Concomitant]
  9. CANDESARTAN CILEXETIL (CANDESARTAN CILEXETIL) [Concomitant]
  10. AMIODARONE HCL [Concomitant]
  11. TORSEMIDE [Concomitant]
  12. VITAMINS, OTHER COMBINATIONS (VITAMINS, OTHER COMBINATIONS) [Concomitant]
  13. PENTOXIFYLLINE [Concomitant]
  14. AMLODIPINE BESYLATE [Concomitant]
  15. POTASSIUM CHLORIDE [Concomitant]
  16. PREDNISONE [Concomitant]
  17. WARFARIN SODIUM [Concomitant]
  18. ATORVASTATIN (ATORVASTATIN) [Concomitant]
  19. GLIMEPIRIDE [Concomitant]

REACTIONS (5)
  - BLOOD GLUCOSE INCREASED [None]
  - HYPOAESTHESIA [None]
  - PAIN [None]
  - PARAPLEGIA [None]
  - PHARMACEUTICAL PRODUCT COMPLAINT [None]
